FAERS Safety Report 7070204-0 (Version None)
Quarter: 2010Q4

REPORT INFORMATION
  Report Type: 
  Country: None (occurrence: None)
  Receive Date: 20101028
  Receipt Date: 20101020
  Transmission Date: 20110411
  Serious: No
  Sender: FDA-Public Use
  Company Number: US-WYE-H17880210

PATIENT
  Sex: Female
  Weight: 63.56 kg

DRUGS (2)
  1. PROTONIX [Suspect]
     Indication: GASTRITIS
     Dates: start: 20100901
  2. PROTONIX [Suspect]
     Indication: GASTROOESOPHAGEAL REFLUX DISEASE

REACTIONS (3)
  - AMNESIA [None]
  - DRUG EFFECT DECREASED [None]
  - SEDATION [None]
